FAERS Safety Report 21273286 (Version 7)
Quarter: 2023Q1

REPORT INFORMATION
  Report Type: Spontaneous
  Country: FR (occurrence: FR)
  Receive Date: 20220831
  Receipt Date: 20230127
  Transmission Date: 20230418
  Serious: Yes (Other)
  Sender: FDA-Public Use
  Company Number: FR-NOVARTISPH-NVSC2022FR179694

PATIENT
  Age: 38 Year
  Sex: Female
  Weight: 167 kg

DRUGS (12)
  1. ACETAMINOPHEN [Suspect]
     Active Substance: ACETAMINOPHEN
     Indication: Product used for unknown indication
     Dosage: UNK
     Route: 065
     Dates: start: 20190509
  2. ACETAMINOPHEN [Suspect]
     Active Substance: ACETAMINOPHEN
     Dosage: 9 MG, QD
     Route: 065
  3. PREDNISONE [Suspect]
     Active Substance: PREDNISONE
     Indication: Product used for unknown indication
     Dosage: UNK
     Route: 065
     Dates: start: 20190509
  4. PREDNISONE [Suspect]
     Active Substance: PREDNISONE
     Dosage: 9 MG, QD
     Route: 048
  5. DESLORATADINE [Suspect]
     Active Substance: DESLORATADINE
     Indication: Product used for unknown indication
     Dosage: UNK
     Route: 065
  6. BENLYSTA [Suspect]
     Active Substance: BELIMUMAB
     Indication: Systemic lupus erythematosus
     Dosage: UNK
     Route: 042
     Dates: end: 201904
  7. BENLYSTA [Suspect]
     Active Substance: BELIMUMAB
     Dosage: 200 MG, QW (WE, WEEKLY)
     Route: 058
     Dates: start: 20190502, end: 20190509
  8. BENLYSTA [Suspect]
     Active Substance: BELIMUMAB
     Dosage: 200 MG, QW
     Route: 058
     Dates: start: 201905
  9. BENLYSTA [Suspect]
     Active Substance: BELIMUMAB
     Dosage: UNK
     Route: 058
     Dates: start: 20190509
  10. BENLYSTA [Suspect]
     Active Substance: BELIMUMAB
     Dosage: UNK
     Route: 042
     Dates: start: 201906
  11. BENLYSTA [Suspect]
     Active Substance: BELIMUMAB
     Dosage: 200 MG, QW (WE, WEEKLY)
     Route: 058
     Dates: start: 20190628
  12. BENLYSTA [Suspect]
     Active Substance: BELIMUMAB
     Dosage: UNK
     Route: 042
     Dates: start: 20190628

REACTIONS (10)
  - Abdominal pain [Recovered/Resolved]
  - Musculoskeletal pain [Recovered/Resolved]
  - Fatigue [Recovered/Resolved]
  - Nausea [Recovered/Resolved]
  - Pyrexia [Unknown]
  - Chills [Unknown]
  - Vomiting [Unknown]
  - Injection site rash [Unknown]
  - Injection site reaction [Unknown]
  - Drug tolerance decreased [Recovered/Resolved]

NARRATIVE: CASE EVENT DATE: 20190101
